FAERS Safety Report 5917858-7 (Version None)
Quarter: 2008Q4

REPORT INFORMATION
  Report Type: 
  Country: None (occurrence: None)
  Receive Date: 20081014
  Receipt Date: 20081006
  Transmission Date: 20090506
  Serious: Yes (Other)
  Sender: FDA-Public Use
  Company Number: CA-JNJFOC-20081001096

PATIENT
  Sex: Female
  Weight: 57.61 kg

DRUGS (5)
  1. MONISTAT 3 COMBINATION PACK [Suspect]
     Route: 067
  2. MONISTAT 3 COMBINATION PACK [Suspect]
     Indication: FUNGAL INFECTION
     Dosage: 4% STRENGTH
     Route: 067
  3. MONISTAT 3 COMBINATION PACK [Suspect]
     Route: 061
  4. MONISTAT 3 COMBINATION PACK [Suspect]
     Dosage: 100MG TUBE (2% STRENGTH EXTERNAL CREAM)
     Route: 061
  5. CLINDAMYCIN HCL [Concomitant]

REACTIONS (1)
  - UTERINE HAEMORRHAGE [None]
